FAERS Safety Report 16474045 (Version 6)
Quarter: 2020Q2

REPORT INFORMATION
  Report Type: Spontaneous
  Country: ES (occurrence: ES)
  Receive Date: 20190625
  Receipt Date: 20200505
  Transmission Date: 20200713
  Serious: Yes (Hospitalization, Other)
  Sender: FDA-Public Use
  Company Number: ES-CELGENEUS-ESP-20190606721

PATIENT
  Age: 73 Year
  Sex: Male
  Weight: 85 kg

DRUGS (29)
  1. ONDANSETRON [Concomitant]
     Active Substance: ONDANSETRON
     Indication: NAUSEA
     Dosage: 8 MILLIGRAM
     Route: 048
     Dates: start: 20180227, end: 20190521
  2. ONDANSETRON [Concomitant]
     Active Substance: ONDANSETRON
     Indication: VOMITING
  3. G-CSF [Concomitant]
     Active Substance: GRANULOCYTE COLONY-STIMULATING FACTOR NOS
     Indication: NEUTROPENIA
     Route: 058
     Dates: start: 20180329, end: 20180402
  4. VENETOCLAX. [Concomitant]
     Active Substance: VENETOCLAX
     Dosage: 100 MILLIGRAM
     Route: 048
     Dates: start: 20180228, end: 20180228
  5. AZACITIDINE. [Suspect]
     Active Substance: AZACITIDINE
     Indication: ACUTE MYELOID LEUKAEMIA
     Dosage: 75 MICROGRAM/SQ. METER
     Route: 058
     Dates: start: 20180227, end: 20190521
  6. PARACETAMOL [Concomitant]
     Active Substance: ACETAMINOPHEN
     Indication: PROPHYLAXIS
     Route: 048
     Dates: start: 20170407
  7. METAMIZOL [Concomitant]
     Active Substance: METAMIZOLE SODIUM
     Indication: PROPHYLAXIS
     Route: 041
     Dates: start: 20180224
  8. FLUCONAZOL [Concomitant]
     Active Substance: FLUCONAZOLE
     Indication: ANTIBIOTIC THERAPY
     Dosage: 400 MILLIGRAM
     Route: 048
     Dates: start: 20190530
  9. G-CSF [Concomitant]
     Active Substance: GRANULOCYTE COLONY-STIMULATING FACTOR NOS
     Dosage: 48 INTERNATIONAL UNITS MILLIONS
     Route: 058
     Dates: start: 20190605, end: 20190607
  10. VENETOCLAX. [Concomitant]
     Active Substance: VENETOCLAX
     Indication: ACUTE MYELOID LEUKAEMIA
     Dosage: 50 MILLIGRAM
     Route: 048
     Dates: start: 20180227, end: 20180227
  11. VENETOCLAX. [Concomitant]
     Active Substance: VENETOCLAX
     Dosage: 200 MILLIGRAM
     Route: 048
     Dates: start: 20180301, end: 20190604
  12. VALSARTAN + HIDROCLOROTIAZIDA [Concomitant]
     Active Substance: HYDROCHLOROTHIAZIDE\VALSARTAN
     Indication: HYPERTENSION
     Dosage: 320/25MG
     Route: 048
     Dates: start: 2010
  13. PROCTOLOG [Concomitant]
     Active Substance: TRIMEBUTINE
     Indication: HAEMORRHOIDS
     Dosage: 1 APPLICATORFULL
     Route: 054
     Dates: start: 201802
  14. ALLOPURINOL. [Concomitant]
     Active Substance: ALLOPURINOL
     Indication: PROPHYLAXIS
     Route: 065
     Dates: start: 20180225, end: 20180313
  15. G-CSF [Concomitant]
     Active Substance: GRANULOCYTE COLONY-STIMULATING FACTOR NOS
     Dosage: 48 INTERNATIONAL UNITS MILLIONS
     Route: 058
     Dates: start: 20181127, end: 20181203
  16. ONDANSETRON [Concomitant]
     Active Substance: ONDANSETRON
     Indication: PROPHYLAXIS
  17. INSULINA [Concomitant]
     Active Substance: INSULIN NOS
     Indication: HYPERGLYCAEMIA
     Dosage: 100U/ML
     Route: 058
     Dates: start: 20180321
  18. TAMSULOSINA [Concomitant]
     Active Substance: TAMSULOSIN HYDROCHLORIDE
     Indication: BENIGN PROSTATIC HYPERPLASIA
     Route: 048
     Dates: start: 20181127
  19. RUSCUS LLORENS [Concomitant]
     Indication: HAEMORRHOIDS
     Dosage: 1 APPLICATORFULL
     Route: 054
     Dates: start: 20180209
  20. LOSARTAN. [Concomitant]
     Active Substance: LOSARTAN
     Indication: HYPERTENSION
     Dosage: 50 MILLIGRAM
     Route: 048
     Dates: start: 20180224
  21. DEXKETOPROFENO [Concomitant]
     Active Substance: DEXKETOPROFEN
     Indication: HAEMORRHOIDS
     Route: 048
     Dates: start: 20180419
  22. TRAMADOL. [Concomitant]
     Active Substance: TRAMADOL
     Indication: HAEMORRHOIDS
     Route: 048
     Dates: start: 20180419
  23. VENETOCLAX. [Concomitant]
     Active Substance: VENETOCLAX
     Dosage: 200 MILLIGRAM
     Route: 048
     Dates: start: 20190703
  24. DIPRODERM [Concomitant]
     Active Substance: BETAMETHASONE DIPROPIONATE
     Indication: ERYTHEMA
     Dosage: .5 MILLIGRAM
     Route: 061
     Dates: start: 20180502
  25. TIORFAN [Concomitant]
     Active Substance: RACECADOTRIL
     Indication: DIARRHOEA
     Dosage: 300 MILLIGRAM
     Route: 048
     Dates: start: 20190225
  26. AZACITIDINE. [Suspect]
     Active Substance: AZACITIDINE
     Dosage: 75 MICROGRAM/SQ. METER
     Route: 058
     Dates: start: 20190703
  27. VENOSMIL [Concomitant]
     Indication: HAEMORRHOIDS
     Dosage: 3600 MILLIGRAM
     Route: 048
     Dates: start: 201802
  28. OMEPRAZOLE. [Concomitant]
     Active Substance: OMEPRAZOLE
     Indication: PROPHYLAXIS
     Dosage: 20 MILLIGRAM
     Route: 065
     Dates: start: 20180307
  29. NORMAL SALINE [Concomitant]
     Active Substance: SODIUM CHLORIDE
     Indication: PROPHYLAXIS
     Route: 041
     Dates: start: 20180225, end: 20180307

REACTIONS (1)
  - Anal abscess [Recovered/Resolved]

NARRATIVE: CASE EVENT DATE: 20190605
